FAERS Safety Report 4393148-1 (Version None)
Quarter: 2004Q3

REPORT INFORMATION
  Report Type: 
  Country: None (occurrence: None)
  Receive Date: 20040702
  Receipt Date: 20040624
  Transmission Date: 20050211
  Serious: Yes (Death)
  Sender: FDA-Public Use
  Company Number: JP-JNJFOC-20031205136

PATIENT
  Age: 54 Year
  Sex: Male

DRUGS (10)
  1. FENTANYL [Suspect]
     Indication: CANCER PAIN
     Dosage: SEE IMAGE, ORAL
     Route: 048
     Dates: start: 20031205, end: 20031218
  2. MORPHINE HYDROCHLORIDE [Concomitant]
  3. PROCHLORPERAZINE MALEATE (PROCHLORPERAZINE MALEATE) [Concomitant]
  4. ZOLPIDEM TARTRATE [Concomitant]
  5. FAMOTIDINE [Concomitant]
  6. AMINOFLUID (AMINOFLUID) [Concomitant]
  7. BETAMETHASONE SODIUM PHOSPHATE [Concomitant]
  8. VITAMIN B COMPLEX (B-KOMPLEX ^LECIVA^) [Concomitant]
  9. FUROSEMIDE [Concomitant]
  10. SOLITA-T1 (SOLITA-T1 INJECTION) [Concomitant]

REACTIONS (11)
  - BLOOD PRESSURE DECREASED [None]
  - CACHEXIA [None]
  - CARDIAC FAILURE [None]
  - CHOLANGITIS [None]
  - CONDITION AGGRAVATED [None]
  - MALIGNANT NEOPLASM PROGRESSION [None]
  - PNEUMONIA [None]
  - PYREXIA [None]
  - SOMNOLENCE [None]
  - SPEECH DISORDER [None]
  - TACHYCARDIA [None]
